FAERS Safety Report 9406253 (Version 1)
Quarter: 2013Q3

REPORT INFORMATION
  Report Type: Spontaneous
  Country: US (occurrence: US)
  Receive Date: 20130717
  Receipt Date: 20130717
  Transmission Date: 20140515
  Serious: No
  Sender: FDA-Public Use
  Company Number: US-BAUSCH-BL-2013-001950

PATIENT
  Age: 71 Year
  Sex: Female

DRUGS (1)
  1. BESIVANCE (BESIFLOXACIN OPHTHALMIC SUSPENSION) 0.6% [Suspect]
     Indication: POSTOPERATIVE CARE
     Dosage: 1 DROP IN LEFT EYE, ONE TIME
     Route: 047
     Dates: start: 20130328, end: 20130328

REACTIONS (1)
  - Foreign body sensation in eyes [Not Recovered/Not Resolved]
